FAERS Safety Report 5065966-8 (Version None)
Quarter: 2006Q3

REPORT INFORMATION
  Report Type: 
  Country: None (occurrence: None)
  Receive Date: 20060731
  Receipt Date: 20060720
  Transmission Date: 20061208
  Serious: Yes (Death, Other)
  Sender: FDA-Public Use
  Company Number: MZ-BOEHRINGER INGELHEIM PHARMACEUTICALS, INC.-2006-DE-03857GD

PATIENT

DRUGS (3)
  1. NEVIRAPINE [Suspect]
     Route: 015
  2. LAMIVUDINE [Suspect]
     Route: 015
  3. ANTIRETROVIRAL DRUG [Suspect]
     Route: 015

REACTIONS (2)
  - DEATH [None]
  - HIV INFECTION [None]
